FAERS Safety Report 17819549 (Version 1)
Quarter: 2020Q2

REPORT INFORMATION
  Report Type: Spontaneous
  Country: GB (occurrence: GB)
  Receive Date: 20200523
  Receipt Date: 20200523
  Transmission Date: 20200714
  Serious: Yes (Life-Threatening, Hospitalization, Other)
  Sender: FDA-Public Use
  Company Number: NVSC2020GB124559

PATIENT
  Sex: Male

DRUGS (2)
  1. PREGABALIN. [Suspect]
     Active Substance: PREGABALIN
     Indication: PRODUCT USED FOR UNKNOWN INDICATION
     Dosage: 2 DF, UNK
     Route: 065
  2. PARACETAMOL [Suspect]
     Active Substance: ACETAMINOPHEN
     Indication: PRODUCT USED FOR UNKNOWN INDICATION
     Dosage: UNK
     Route: 065

REACTIONS (25)
  - Agoraphobia [Unknown]
  - Poisoning [Unknown]
  - Drug level increased [Unknown]
  - Wrong product administered [Unknown]
  - Mood swings [Unknown]
  - Mouth swelling [Unknown]
  - Dyspnoea [Unknown]
  - Libido decreased [Unknown]
  - Loss of consciousness [Unknown]
  - Personality change [Unknown]
  - Lip blister [Unknown]
  - Suicidal ideation [Unknown]
  - Head injury [Unknown]
  - Heart rate increased [Unknown]
  - Dizziness [Unknown]
  - Antisocial behaviour [Unknown]
  - Thinking abnormal [Unknown]
  - Phobia [Unknown]
  - Fatigue [Recovered/Resolved]
  - Anaphylactic shock [Unknown]
  - Disturbance in attention [Unknown]
  - Peripheral swelling [Unknown]
  - Deafness unilateral [Unknown]
  - Memory impairment [Unknown]
  - Vomiting [Unknown]

NARRATIVE: CASE EVENT DATE: 20170323
